FAERS Safety Report 18403575 (Version 1)
Quarter: 2020Q4

REPORT INFORMATION
  Report Type: Spontaneous
  Country: US (occurrence: US)
  Receive Date: 20201020
  Receipt Date: 20201020
  Transmission Date: 20210114
  Serious: Yes (Other)
  Sender: FDA-Public Use
  Company Number: US-ELI_LILLY_AND_COMPANY-US202010004385

PATIENT
  Sex: Female

DRUGS (4)
  1. BASAGLAR [Suspect]
     Active Substance: INSULIN GLARGINE
     Dosage: 40 U, BID
     Route: 058
  2. BASAGLAR [Suspect]
     Active Substance: INSULIN GLARGINE
     Dosage: 40 U, BID
     Route: 058
  3. BASAGLAR [Suspect]
     Active Substance: INSULIN GLARGINE
     Indication: PRODUCT USED FOR UNKNOWN INDICATION
     Dosage: 80 U, EACH EVENING
     Route: 058
     Dates: start: 2017
  4. BASAGLAR [Suspect]
     Active Substance: INSULIN GLARGINE
     Indication: PRODUCT USED FOR UNKNOWN INDICATION
     Dosage: 80 U, EACH EVENING
     Route: 058
     Dates: start: 2017

REACTIONS (7)
  - Cholelithiasis [Not Recovered/Not Resolved]
  - Incorrect dose administered [Unknown]
  - Inappropriate schedule of product administration [Unknown]
  - Gallbladder disorder [Not Recovered/Not Resolved]
  - Spleen disorder [Not Recovered/Not Resolved]
  - Hepatic cirrhosis [Not Recovered/Not Resolved]
  - Hepatic vascular thrombosis [Recovered/Resolved]
